FAERS Safety Report 5390244-7 (Version None)
Quarter: 2007Q3

REPORT INFORMATION
  Report Type: 
  Country: None (occurrence: None)
  Receive Date: 20070718
  Receipt Date: 20070713
  Transmission Date: 20080115
  Serious: Yes (Death)
  Sender: FDA-Public Use
  Company Number: JP-ASTRAZENECA-2001AP06014

PATIENT
  Age: 19748 Day
  Sex: Female

DRUGS (4)
  1. XYLOCAINE VISCOUS [Suspect]
     Route: 002
     Dates: start: 20000930, end: 20000930
  2. XYLOCAINE [Suspect]
     Dosage: SPRAYED IN PHARYNX
     Route: 049
     Dates: start: 20000930, end: 20000930
  3. XYLOCAINE TOPICAL FILM [Suspect]
     Route: 049
     Dates: start: 20000930, end: 20000930
  4. GLUCAGON [Concomitant]
     Route: 030
     Dates: start: 20000930, end: 20000930

REACTIONS (1)
  - CEREBRAL INFARCTION [None]
